FAERS Safety Report 10775676 (Version 1)
Quarter: 2015Q1

REPORT INFORMATION
  Report Type: Spontaneous
  Country: US (occurrence: None)
  Receive Date: 20150206
  Receipt Date: 20150206
  Transmission Date: 20150721
  Serious: Yes (Other)
  Sender: FDA-Public Use
  Company Number: None

PATIENT
  Age: 73 Year
  Sex: Male
  Weight: 68.04 kg

DRUGS (4)
  1. CLODINE [Concomitant]
  2. NORVICE [Concomitant]
  3. CARVOLIN [Concomitant]
  4. FINASTERIDE. [Suspect]
     Active Substance: FINASTERIDE
     Indication: PROSTATIC DISORDER
     Route: 048
     Dates: end: 2015

REACTIONS (1)
  - Gynaecomastia [None]
